FAERS Safety Report 24182440 (Version 1)
Quarter: 2024Q3

REPORT INFORMATION
  Report Type: Spontaneous
  Country: CN (occurrence: CN)
  Receive Date: 20240807
  Receipt Date: 20240807
  Transmission Date: 20241017
  Serious: Yes (Other)
  Sender: SANDOZ
  Company Number: CN-002147023-NVSC2023CN270532

PATIENT

DRUGS (5)
  1. PATANOL [Suspect]
     Active Substance: OLOPATADINE HYDROCHLORIDE
     Indication: Conjunctivitis allergic
     Dosage: UNK
     Route: 065
  2. PATANOL [Suspect]
     Active Substance: OLOPATADINE HYDROCHLORIDE
     Indication: Pruritus
  3. TOBREX [Suspect]
     Active Substance: TOBRAMYCIN
     Indication: Dry eye
     Dosage: UNK
     Route: 065
  4. TOBREX [Suspect]
     Active Substance: TOBRAMYCIN
     Indication: Eye pruritus
  5. PRANOPROFEN [Concomitant]
     Active Substance: PRANOPROFEN
     Indication: Product used for unknown indication
     Dosage: UNK
     Route: 065

REACTIONS (5)
  - Xerophthalmia [Unknown]
  - Condition aggravated [Unknown]
  - Pain [Unknown]
  - Conjunctivitis allergic [Unknown]
  - Drug ineffective [Unknown]
